FAERS Safety Report 7562513-3 (Version None)
Quarter: 2011Q2

REPORT INFORMATION
  Report Type: 
  Country: None (occurrence: None)
  Receive Date: 20110622
  Receipt Date: 20110620
  Transmission Date: 20111010
  Serious: Yes (Hospitalization)
  Sender: FDA-Public Use
  Company Number: DE-SANOFI-AVENTIS-2011SA019096

PATIENT
  Age: 66 Year
  Sex: Female

DRUGS (6)
  1. ACETYL SALICYLIC ACID COMPOUND TAB [Concomitant]
     Route: 065
  2. MULTAQ [Suspect]
     Route: 048
     Dates: start: 20101001
  3. METOPROLOL SUCCINATE [Concomitant]
     Dosage: DOSAGE: 1-0-1/2-0
     Route: 065
  4. DIOVANE [Concomitant]
     Route: 065
  5. ENALAPRIL MALEATE [Concomitant]
     Route: 065
  6. TRIAMTERENE AND HYDROCHLOROTHIAZIDE [Concomitant]
     Route: 065

REACTIONS (3)
  - ATRIAL FIBRILLATION [None]
  - BLOOD CREATININE INCREASED [None]
  - TACHYCARDIA [None]
